FAERS Safety Report 5523503-5 (Version None)
Quarter: 2007Q4

REPORT INFORMATION
  Report Type: 
  Country: None (occurrence: None)
  Receive Date: 20071121
  Receipt Date: 20071119
  Transmission Date: 20080405
  Serious: Yes (Death)
  Sender: FDA-Public Use
  Company Number: GB-BRISTOL-MYERS SQUIBB COMPANY-13988878

PATIENT
  Sex: Female

DRUGS (1)
  1. HYDREA [Suspect]
     Indication: HEPATIC CIRRHOSIS
     Dosage: DOSE REDUCED TO TWICE DAILY.

REACTIONS (5)
  - ARTHRALGIA [None]
  - CEREBROVASCULAR ACCIDENT [None]
  - DIZZINESS [None]
  - NAIL PIGMENTATION [None]
  - PIGMENTATION DISORDER [None]
